FAERS Safety Report 12667565 (Version 1)
Quarter: 2016Q3

REPORT INFORMATION
  Report Type: Spontaneous
  Country: US (occurrence: US)
  Receive Date: 20160819
  Receipt Date: 20160819
  Transmission Date: 20161109
  Serious: Yes (Hospitalization, Other)
  Sender: FDA-Public Use
  Company Number: US-009507513-1608USA007699

PATIENT
  Age: 63 Year
  Sex: Male

DRUGS (8)
  1. BELSOMRA [Suspect]
     Active Substance: SUVOREXANT
     Dosage: 20 MG, AT BEDTIME
     Route: 048
  2. OXYCODONE [Suspect]
     Active Substance: OXYCODONE
     Dosage: 30 MG, HS
  3. SOTALOL. [Suspect]
     Active Substance: SOTALOL
     Dosage: 80 MG, HS
  4. KLONOPIN [Suspect]
     Active Substance: CLONAZEPAM
     Dosage: 1 MG, HS
  5. PRADAXA [Suspect]
     Active Substance: DABIGATRAN ETEXILATE MESYLATE
     Dosage: 150 MG, HS
  6. LIPITOR [Suspect]
     Active Substance: ATORVASTATIN CALCIUM
     Dosage: 20 MG, HS
  7. TRILEPTAL [Suspect]
     Active Substance: OXCARBAZEPINE
     Dosage: 300 MG, HS
  8. RISPERIDONE. [Suspect]
     Active Substance: RISPERIDONE
     Dosage: 20 MG, HS

REACTIONS (10)
  - Drug abuse [Unknown]
  - Eye movement disorder [Unknown]
  - Hyperhidrosis [Unknown]
  - Haemoptysis [Unknown]
  - Lung disorder [Unknown]
  - Rhabdomyolysis [Unknown]
  - Somnolence [Unknown]
  - Miosis [Unknown]
  - Heart rate decreased [Recovered/Resolved]
  - Atrial fibrillation [Recovered/Resolved]

NARRATIVE: CASE EVENT DATE: 201608
